FAERS Safety Report 15793086 (Version 3)
Quarter: 2019Q1

REPORT INFORMATION
  Report Type: Report from Study
  Country: US (occurrence: US)
  Receive Date: 20190107
  Receipt Date: 20190226
  Transmission Date: 20190417
  Serious: Yes (Hospitalization, Other)
  Sender: FDA-Public Use
  Company Number: PHEH2018US055357

PATIENT
  Age: 31 Year
  Sex: Female
  Weight: 131.5 kg

DRUGS (1)
  1. GILENYA [Suspect]
     Active Substance: FINGOLIMOD HYDROCHLORIDE
     Indication: MULTIPLE SCLEROSIS
     Dosage: 0.5 MG, QD
     Route: 048
     Dates: start: 20180502

REACTIONS (6)
  - Abdominal pain [Unknown]
  - Multiple sclerosis relapse [Unknown]
  - Stress [Unknown]
  - Chills [Unknown]
  - Gait inability [Unknown]
  - Urinary tract infection [Unknown]

NARRATIVE: CASE EVENT DATE: 20190215
